FAERS Safety Report 25413080 (Version 1)
Quarter: 2025Q2

REPORT INFORMATION
  Report Type: Spontaneous
  Country: US (occurrence: None)
  Receive Date: 20250606
  Receipt Date: 20250606
  Transmission Date: 20250716
  Serious: Yes (Hospitalization)
  Sender: FDA-CTU
  Company Number: None

PATIENT
  Age: 18 Year
  Sex: Male
  Weight: 61.6 kg

DRUGS (1)
  1. SUNITINIB [Suspect]
     Active Substance: SUNITINIB
     Indication: Alveolar soft part sarcoma metastatic
     Dosage: FREQUENCY : DAILY;?
     Route: 048
     Dates: start: 20250116, end: 20250418

REACTIONS (3)
  - Pleural effusion [None]
  - Palpitations [None]
  - Atelectasis [None]

NARRATIVE: CASE EVENT DATE: 20250422
